FAERS Safety Report 13991304 (Version 2)
Quarter: 2017Q3

REPORT INFORMATION
  Report Type: Spontaneous
  Country: US (occurrence: US)
  Receive Date: 20170920
  Receipt Date: 20170923
  Transmission Date: 20171128
  Serious: Yes (Other)
  Sender: FDA-Public Use
  Company Number: US-DRREDDYS-USA/USA/17/0093009

PATIENT
  Age: 86 Year
  Sex: Male

DRUGS (1)
  1. NICOTINE. [Suspect]
     Active Substance: NICOTINE
     Indication: SMOKING CESSATION THERAPY
     Route: 065

REACTIONS (6)
  - Product quality issue [Unknown]
  - Dementia [Unknown]
  - Treatment noncompliance [Unknown]
  - Mood altered [Unknown]
  - Drug ineffective [Unknown]
  - Overdose [Unknown]
